FAERS Safety Report 9063152 (Version 2)
Quarter: 2013Q1

REPORT INFORMATION
  Report Type: Spontaneous
  Country: UA (occurrence: UA)
  Receive Date: 20130213
  Receipt Date: 20130226
  Transmission Date: 20140127
  Serious: Yes (Hospitalization, Other)
  Sender: FDA-Public Use
  Company Number: UA-BRISTOL-MYERS SQUIBB COMPANY-17366089

PATIENT
  Age: 63 Year
  Sex: Male

DRUGS (19)
  1. METFORMIN HCL [Suspect]
     Indication: DIABETES MELLITUS
     Route: 048
     Dates: start: 20100708
  2. LIPRIMAR [Concomitant]
     Route: 048
     Dates: start: 2002
  3. METRONIDAZOLE [Concomitant]
     Route: 048
     Dates: start: 20100917, end: 20100927
  4. CEFOTAXIME [Concomitant]
     Dates: start: 20100917, end: 20101001
  5. LEVOFLOXACIN [Concomitant]
     Route: 042
     Dates: start: 20100917, end: 20100924
  6. HEPARIN [Concomitant]
     Route: 058
     Dates: start: 20100920, end: 20100924
  7. SULFOCAMPHOCAINE [Concomitant]
     Route: 030
     Dates: start: 20120917, end: 20120924
  8. SPIRONOLACTONE [Concomitant]
     Route: 048
     Dates: start: 20100917, end: 20101015
  9. AMBROXOLUM [Concomitant]
     Route: 048
     Dates: start: 20100917, end: 20101015
  10. ASPARTIC ACID [Concomitant]
     Route: 048
     Dates: start: 20100917, end: 20101015
  11. ASPECARDUM [Concomitant]
     Route: 048
     Dates: start: 20100917, end: 20101015
  12. SOLU-MEDROL [Concomitant]
     Route: 042
     Dates: start: 20101029, end: 20101102
  13. MEDROL [Concomitant]
     Dosage: 1DF = 18,12,4,2 MG
     Route: 048
     Dates: start: 20101103, end: 20101216
  14. BISEPTOL [Concomitant]
     Indication: PNEUMONIA
     Route: 048
     Dates: start: 20101103, end: 20101125
  15. BISOPROLOL [Concomitant]
     Route: 048
     Dates: start: 20101112
  16. PERINDOPRIL [Concomitant]
     Route: 048
     Dates: start: 20101112
  17. AVELOX [Concomitant]
     Route: 042
     Dates: start: 20101016, end: 20101028
  18. FLUIMUCIL [Concomitant]
     Route: 042
     Dates: start: 20101016, end: 20101021
  19. GONADORELIN [Concomitant]

REACTIONS (3)
  - Pneumocystis jirovecii pneumonia [Recovered/Resolved with Sequelae]
  - Mitral valve incompetence [Not Recovered/Not Resolved]
  - Ventricular dysfunction [Not Recovered/Not Resolved]
